FAERS Safety Report 10171125 (Version 1)
Quarter: 2014Q2

REPORT INFORMATION
  Report Type: Spontaneous
  Country: US (occurrence: None)
  Receive Date: 20140501
  Receipt Date: 20140501
  Transmission Date: 20141212
  Serious: No
  Sender: FDA-Public Use
  Company Number: PHEH2014US002920

PATIENT
  Sex: Male

DRUGS (9)
  1. ARCAPTA [Suspect]
     Route: 055
  2. ACETYLSALICYLIC ACID [Suspect]
  3. SYMBICORT [Suspect]
  4. BISOPROLOL [Concomitant]
  5. LEVOTHYROXINE [Concomitant]
  6. ZOLPIDEM [Concomitant]
  7. LORAZEPAM [Concomitant]
  8. ALLERGY (CHLORPHENAMINE) [Concomitant]
  9. MUCINEX (GUAIFENESIN) [Concomitant]

REACTIONS (3)
  - Dry mouth [None]
  - Dyspnoea [None]
  - Drug ineffective [None]
